FAERS Safety Report 6814973-0 (Version None)
Quarter: 2010Q3

REPORT INFORMATION
  Report Type: 
  Country: None (occurrence: None)
  Receive Date: 20100702
  Receipt Date: 20100628
  Transmission Date: 20110219
  Serious: Yes (Hospitalization)
  Sender: FDA-Public Use
  Company Number: US-ROCHE-712536

PATIENT
  Age: 92 Year
  Sex: Female
  Weight: 56.9 kg

DRUGS (2)
  1. BEVACIZUMAB [Suspect]
     Indication: BRONCHIOLOALVEOLAR CARCINOMA
     Dosage: INFUSION,TOTAL DOSE ADMINISTERED:855 MG,LAST ADMINISTERED:04 JUNE 2010,INTERRUPTED
     Route: 042
     Dates: start: 20100422
  2. ERLOTINIB [Suspect]
     Indication: BRONCHIOLOALVEOLAR CARCINOMA
     Dosage: FREQUENCY: D1-21, TOTAL DOSE ADMINISTERED: 1800 MG, LAST ADMINISTERED DATE:15 JUNE 2010,INTERRUPTED
     Route: 048
     Dates: start: 20100422

REACTIONS (3)
  - BLOOD CREATININE [None]
  - DEHYDRATION [None]
  - MUSCULAR WEAKNESS [None]
